FAERS Safety Report 9092442 (Version 1)
Quarter: 2013Q1

REPORT INFORMATION
  Report Type: Report from Study
  Country: US (occurrence: US)
  Receive Date: 20130201
  Receipt Date: 20130201
  Transmission Date: 20140127
  Serious: No
  Sender: FDA-Public Use
  Company Number: US-ABBOTT-12P-163-1022927-00

PATIENT
  Age: 54 Year
  Sex: Female

DRUGS (3)
  1. HUMIRA [Suspect]
     Indication: RHEUMATOID ARTHRITIS
  2. IMURAN [Concomitant]
     Indication: RHEUMATOID ARTHRITIS
     Dosage: 2 PILLS IN AM, 1 PILL IN PM
  3. CELEXA [Concomitant]
     Indication: DEPRESSION
     Dosage: 40MG DAILY

REACTIONS (2)
  - Injection site vesicles [Recovered/Resolved]
  - Injection site vesicles [Recovered/Resolved]
